FAERS Safety Report 17966993 (Version 1)
Quarter: 2020Q2

REPORT INFORMATION
  Report Type: Spontaneous
  Country: US (occurrence: US)
  Receive Date: 20200629
  Receipt Date: 20200629
  Transmission Date: 20200714
  Serious: Yes (Hospitalization)
  Sender: FDA-Public Use
  Company Number: None

PATIENT
  Sex: Female

DRUGS (13)
  1. SILDENAFIL. [Concomitant]
     Active Substance: SILDENAFIL
  2. ALLOPURINOL. [Concomitant]
     Active Substance: ALLOPURINOL
  3. BETHANECHOL [Concomitant]
     Active Substance: BETHANECHOL
  4. OPSUMIT [Concomitant]
     Active Substance: MACITENTAN
  5. RITUXAN [Suspect]
     Active Substance: RITUXIMAB
     Indication: POLYARTHRITIS
     Dosage: 1000MG (2 VIALS):Q6M  INFUSION IV?
     Route: 042
     Dates: start: 20200129
  6. GABAPENTIN. [Concomitant]
     Active Substance: GABAPENTIN
  7. LEVOTHYROXIN [Concomitant]
     Active Substance: LEVOTHYROXINE
  8. ORENITRAM [Concomitant]
     Active Substance: TREPROSTINIL
  9. REMODULIN [Concomitant]
     Active Substance: TREPROSTINIL
  10. SPIRONOLACT [Concomitant]
     Active Substance: SPIRONOLACTONE
  11. LOSARTAN POT [Concomitant]
     Active Substance: LOSARTAN POTASSIUM
  12. BUMEX [Concomitant]
     Active Substance: BUMETANIDE
  13. PANTOPRAZOLE [Concomitant]
     Active Substance: PANTOPRAZOLE

REACTIONS (1)
  - Fluid retention [None]
